FAERS Safety Report 4351194-8 (Version None)
Quarter: 2004Q2

REPORT INFORMATION
  Report Type: 
  Country: None (occurrence: None)
  Receive Date: 20040428
  Receipt Date: 20030410
  Transmission Date: 20050107
  Serious: Yes (Other)
  Sender: FDA-Public Use
  Company Number: NSADSS2003017611

PATIENT
  Age: 30 Year
  Sex: Male

DRUGS (9)
  1. ULTRAM [Suspect]
     Indication: DRUG USE FOR UNKNOWN INDICATION
     Dosage: 50 MG, ORAL
     Route: 048
  2. ENBREL [Suspect]
     Indication: RHEUMATOID ARTHRITIS
     Dosage: 25 MG, 2 IN 1 WEEK, SUBCUTANEOUS
     Route: 058
     Dates: start: 20030211, end: 20030216
  3. ZOLPIDEM TARTRATE [Concomitant]
  4. AMLODIPINE BESYLATE [Concomitant]
  5. PREDNISONE [Concomitant]
  6. LEFLUNOMIDE (LEFLUNOMIDE) [Concomitant]
  7. METHOTREXATE [Concomitant]
  8. SULFASALAZINE [Concomitant]
  9. FOLIC ACID [Concomitant]

REACTIONS (1)
  - CONVULSION [None]
